FAERS Safety Report 16794739 (Version 1)
Quarter: 2019Q3

REPORT INFORMATION
  Report Type: Spontaneous
  Country: FR (occurrence: FR)
  Receive Date: 20190911
  Receipt Date: 20190911
  Transmission Date: 20191005
  Serious: Yes (Hospitalization, Other)
  Sender: FDA-Public Use
  Company Number: PHHY2019FR206899

PATIENT
  Age: 39 Year
  Sex: Male

DRUGS (15)
  1. BICLOTYMOL [Suspect]
     Active Substance: BICLOTYMOL
     Indication: PHARYNGEAL INFLAMMATION
     Dosage: 4 DF, QD
     Route: 002
     Dates: start: 20120303, end: 20120305
  2. EXOMUC [Concomitant]
     Active Substance: ACETYLCYSTEINE
     Indication: PRODUCT USED FOR UNKNOWN INDICATION
     Dosage: UNK
     Route: 065
  3. AMOXICILLIN TRIHYDRATE +POTASSIUM CLAVULANATE [Suspect]
     Active Substance: AMOXICILLIN\CLAVULANATE POTASSIUM
     Indication: SINUSITIS
     Dosage: 3 DF, QD (3 DF,QD; DOSE:3 UNIT(S))
     Route: 048
     Dates: start: 20120224, end: 20120303
  4. HELICIDINE [Suspect]
     Active Substance: ESCARGOT
     Indication: SINUSITIS
     Dosage: 3 DF, QD
     Route: 048
     Dates: start: 20120224, end: 20120303
  5. RULID [Suspect]
     Active Substance: ROXITHROMYCIN
     Indication: SINUSITIS
     Dosage: 300 MG, QD
     Route: 048
     Dates: start: 20120203, end: 20120205
  6. PREDNISOLONE METASULFOBENZOATE SODIUM [Suspect]
     Active Substance: PREDNISOLONE SODIUM METAZOATE
     Indication: SINUSITIS
     Dosage: 60 MG,QD
     Route: 048
     Dates: start: 20120224, end: 20120226
  7. PREDNISOLONE METASULFOBENZOATE SODIUM [Suspect]
     Active Substance: PREDNISOLONE SODIUM METAZOATE
     Dosage: UNK
     Route: 048
     Dates: start: 20120303, end: 20120305
  8. TRIMEBUTINE [Concomitant]
     Active Substance: TRIMEBUTINE
     Indication: TRACHEITIS
     Dosage: UNK
     Route: 065
  9. SURGAM [Concomitant]
     Active Substance: TIAPROFENIC ACID
     Indication: PRODUCT USED FOR UNKNOWN INDICATION
     Dosage: UNK
     Route: 065
  10. FLUCONAZOLE. [Suspect]
     Active Substance: FLUCONAZOLE
     Indication: SINUSITIS
     Dosage: 2 DF, QD
     Route: 048
     Dates: start: 20120303, end: 20120305
  11. TOPLEXIL (OXOMEMAZINE) [Concomitant]
     Active Substance: OXOMEMAZINE
     Indication: PRODUCT USED FOR UNKNOWN INDICATION
     Dosage: UNK
     Route: 065
  12. AZITHROMYCIN ANHYDROUS. [Suspect]
     Active Substance: AZITHROMYCIN ANHYDROUS
     Indication: TRACHEITIS
     Dosage: 2 DF, QD
     Route: 048
     Dates: start: 20120223, end: 20120224
  13. THALIDOMIDE [Concomitant]
     Active Substance: THALIDOMIDE
     Indication: PRODUCT USED FOR UNKNOWN INDICATION
     Dosage: UNK
     Route: 065
  14. DOLIPRANE [Concomitant]
     Active Substance: ACETAMINOPHEN
     Indication: PRODUCT USED FOR UNKNOWN INDICATION
     Dosage: UNK
     Route: 065
  15. CHLORHEXIDINE+CHLOROBUTANOL [Suspect]
     Active Substance: CHLORHEXIDINE\CHLOROBUTANOL HEMIHYDRATE
     Indication: STOMATITIS
     Dosage: UNK UNK, QD (FREQUENCY- 2 TO 4 TIME DAILY)
     Route: 002
     Dates: start: 20120303, end: 20120305

REACTIONS (1)
  - Stevens-Johnson syndrome [Recovered/Resolved with Sequelae]

NARRATIVE: CASE EVENT DATE: 20120303
